FAERS Safety Report 7940920-4 (Version None)
Quarter: 2011Q4

REPORT INFORMATION
  Report Type: 
  Country: None (occurrence: None)
  Receive Date: 20111128
  Receipt Date: 20111109
  Transmission Date: 20120403
  Serious: Yes (Other)
  Sender: FDA-Public Use
  Company Number: AU-B.I. PHARMACEUTICALS,INC./RIDGEFIELD-2011-EU-00659AU

PATIENT
  Sex: Male

DRUGS (1)
  1. PRADAXA [Suspect]
     Dosage: 220 MG

REACTIONS (5)
  - RENAL IMPAIRMENT [None]
  - HAEMATOCHEZIA [None]
  - SWELLING FACE [None]
  - GASTROINTESTINAL CARCINOMA [None]
  - MALAISE [None]
